FAERS Safety Report 6420574-9 (Version None)
Quarter: 2009Q4

REPORT INFORMATION
  Report Type: 
  Country: None (occurrence: None)
  Receive Date: 20091027
  Receipt Date: 20091022
  Transmission Date: 20100525
  Serious: Yes (Death)
  Sender: FDA-Public Use
  Company Number: AE-1009-375

PATIENT
  Sex: Male

DRUGS (4)
  1. LIDODERM [Suspect]
     Indication: POST HERPETIC NEURALGIA
  2. LYRICA [Suspect]
     Indication: POST HERPETIC NEURALGIA
  3. NEURONTIN [Suspect]
     Indication: POST HERPETIC NEURALGIA
  4. UNSPECIFIED NSAIDS [Concomitant]

REACTIONS (1)
  - DRUG INEFFECTIVE [None]
